FAERS Safety Report 7669274-8 (Version None)
Quarter: 2011Q3

REPORT INFORMATION
  Report Type: 
  Country: None (occurrence: None)
  Receive Date: 20110808
  Receipt Date: 20110725
  Transmission Date: 20111222
  Serious: Yes (Hospitalization, Other)
  Sender: FDA-Public Use
  Company Number: US-ROCHE-760498

PATIENT
  Sex: Male
  Weight: 40.4 kg

DRUGS (1)
  1. ACCUTANE [Suspect]
     Route: 048
     Dates: start: 20010403, end: 20010823

REACTIONS (16)
  - IRRITABLE BOWEL SYNDROME [None]
  - LARGE INTESTINE PERFORATION [None]
  - OSTEOPOROSIS [None]
  - CROHN'S DISEASE [None]
  - IRON DEFICIENCY ANAEMIA [None]
  - HAEMORRHOIDS [None]
  - ABDOMINAL ABSCESS [None]
  - RECTAL ABSCESS [None]
  - PERINEAL FISTULA [None]
  - ANASTOMOTIC COMPLICATION [None]
  - INTESTINAL OBSTRUCTION [None]
  - COLITIS ULCERATIVE [None]
  - BACTERIAL SEPSIS [None]
  - MALNUTRITION [None]
  - INFLAMMATORY BOWEL DISEASE [None]
  - DEPRESSION [None]
